FAERS Safety Report 5850827-4 (Version None)
Quarter: 2008Q3

REPORT INFORMATION
  Report Type: 
  Country: None (occurrence: None)
  Receive Date: 20080819
  Receipt Date: 20080819
  Transmission Date: 20090109
  Serious: Yes (Hospitalization)
  Sender: FDA-Public Use
  Company Number: None

PATIENT
  Sex: Female
  Weight: 73.5 kg

DRUGS (1)
  1. NOLVADEX [Suspect]
     Dosage: 3980 MG

REACTIONS (4)
  - ARTERIOSCLEROSIS [None]
  - CARDIAC ARREST [None]
  - INTESTINAL INFARCTION [None]
  - SEPSIS [None]
